FAERS Safety Report 9920825 (Version 2)
Quarter: 2014Q1

REPORT INFORMATION
  Report Type: Spontaneous
  Country: US (occurrence: US)
  Receive Date: 20140224
  Receipt Date: 20140224
  Transmission Date: 20141002
  Serious: Yes (Disabling)
  Sender: FDA-Public Use
  Company Number: US-GE HEALTHCARE MEDICAL DIAGNOSTICS-OSCN-PR-0712S-0502

PATIENT
  Sex: Female

DRUGS (3)
  1. OMNISCAN [Suspect]
     Indication: DYSPHAGIA
     Route: 042
     Dates: start: 20031125, end: 20031125
  2. OMNISCAN [Suspect]
     Indication: VERTIGO
  3. METHOTREXATE [Concomitant]
     Indication: SYNOVITIS

REACTIONS (1)
  - Nephrogenic systemic fibrosis [Not Recovered/Not Resolved]
